FAERS Safety Report 18564343 (Version 5)
Quarter: 2021Q4

REPORT INFORMATION
  Report Type: Other
  Country: ME (occurrence: None)
  Receive Date: 20201201
  Receipt Date: 20211216
  Transmission Date: 20220304
  Serious: Yes (Death)
  Sender: FDA-Public Use
  Company Number: ME-ROCHE-2723307

PATIENT
  Age: 60 Year
  Sex: Male
  Weight: 100 kg

DRUGS (18)
  1. OCRELIZUMAB [Suspect]
     Active Substance: OCRELIZUMAB
     Indication: Primary progressive multiple sclerosis
     Dosage: VISIT 2
     Route: 042
     Dates: start: 20190712, end: 20190712
  2. OCRELIZUMAB [Suspect]
     Active Substance: OCRELIZUMAB
     Dosage: VISIT 3
     Route: 042
     Dates: start: 20190726, end: 20190726
  3. OCRELIZUMAB [Suspect]
     Active Substance: OCRELIZUMAB
     Dosage: VISIT 4
     Route: 042
     Dates: start: 20191225, end: 20191225
  4. OCRELIZUMAB [Suspect]
     Active Substance: OCRELIZUMAB
     Dosage: VISIT 5
     Route: 042
     Dates: start: 20200612, end: 20200612
  5. MILGAMMA [Concomitant]
     Route: 048
     Dates: start: 20200612
  6. TOLPERISONE [Concomitant]
     Active Substance: TOLPERISONE
     Route: 048
     Dates: start: 20200612
  7. METHYLPREDNISOLONE [Concomitant]
     Active Substance: METHYLPREDNISOLONE
     Indication: Premedication
     Route: 042
     Dates: start: 20190712, end: 20190712
  8. METHYLPREDNISOLONE [Concomitant]
     Active Substance: METHYLPREDNISOLONE
     Route: 042
     Dates: start: 20190726, end: 20190726
  9. METHYLPREDNISOLONE [Concomitant]
     Active Substance: METHYLPREDNISOLONE
     Route: 042
     Dates: start: 20191225, end: 20191225
  10. METHYLPREDNISOLONE [Concomitant]
     Active Substance: METHYLPREDNISOLONE
     Route: 042
     Dates: start: 20200612, end: 20200612
  11. CHLOROPYRAMINE [Concomitant]
     Active Substance: CHLOROPYRAMINE
     Indication: Premedication
     Route: 030
     Dates: start: 20190712, end: 20190712
  12. CHLOROPYRAMINE [Concomitant]
     Active Substance: CHLOROPYRAMINE
     Route: 030
     Dates: start: 20190726, end: 20190726
  13. CHLOROPYRAMINE [Concomitant]
     Active Substance: CHLOROPYRAMINE
     Route: 030
     Dates: start: 20191225, end: 20191225
  14. CHLOROPYRAMINE [Concomitant]
     Active Substance: CHLOROPYRAMINE
     Route: 030
     Dates: start: 20200612, end: 20200612
  15. ACETAMINOPHEN [Concomitant]
     Active Substance: ACETAMINOPHEN
     Indication: Premedication
     Route: 048
     Dates: start: 20190712, end: 20190712
  16. ACETAMINOPHEN [Concomitant]
     Active Substance: ACETAMINOPHEN
     Route: 048
     Dates: start: 20190726, end: 20190726
  17. ACETAMINOPHEN [Concomitant]
     Active Substance: ACETAMINOPHEN
     Route: 048
     Dates: start: 20191225, end: 20191225
  18. ACETAMINOPHEN [Concomitant]
     Active Substance: ACETAMINOPHEN
     Route: 048
     Dates: start: 20200612, end: 20200612

REACTIONS (1)
  - COVID-19 [Fatal]

NARRATIVE: CASE EVENT DATE: 20201111
